FAERS Safety Report 8455222-X (Version None)
Quarter: 2012Q2

REPORT INFORMATION
  Report Type: 
  Country: None (occurrence: None)
  Receive Date: 20120621
  Receipt Date: 20120613
  Transmission Date: 20120825
  Serious: Yes (Hospitalization, Other)
  Sender: FDA-Public Use
  Company Number: FR-ASTELLAS-2011EU006622

PATIENT
  Sex: Male
  Weight: 92 kg

DRUGS (13)
  1. PROGRAF [Suspect]
     Dosage: 6 MG, UNKNOWN/D
     Route: 048
     Dates: start: 20060504, end: 20060704
  2. PROGRAF [Suspect]
     Dosage: 3.5 MG, UNKNOWN/D
     Route: 048
     Dates: start: 20100413, end: 20100922
  3. CELLCEPT [Suspect]
     Indication: RENAL TRANSPLANT
     Dosage: 1 G, BID
     Route: 065
     Dates: start: 20051102
  4. PROGRAF [Suspect]
     Dosage: 8 MG, UNKNOWN/D
     Route: 048
     Dates: start: 20051126, end: 20051205
  5. PROGRAF [Suspect]
     Dosage: 4 MG, UNKNOWN/D
     Route: 048
     Dates: start: 20100316, end: 20100412
  6. TACROLIMUS [Suspect]
     Indication: RENAL TRANSPLANT
     Dosage: 3 MG, UID/QD
     Route: 048
  7. PROGRAF [Suspect]
     Indication: RENAL TRANSPLANT
     Dosage: 6 MG, UNKNOWN/D
     Route: 048
     Dates: start: 20051101, end: 20051125
  8. PROGRAF [Suspect]
     Dosage: 5 MG, UNKNOWN/D
     Route: 048
     Dates: start: 20060705, end: 20100315
  9. VITAMIN D [Concomitant]
     Indication: VITAMIN D DEFICIENCY
     Dosage: 100000 IU, OTHER
     Route: 048
     Dates: start: 20120130
  10. PROGRAF [Suspect]
     Dosage: UNK
     Route: 065
     Dates: start: 20051102
  11. HYPERIUM [Concomitant]
     Indication: HYPERTENSION
     Dosage: 2 MG, UNKNOWN/D
     Route: 048
     Dates: start: 20051122
  12. PROGRAF [Suspect]
     Dosage: 7 MG, UNKNOWN/D
     Route: 048
     Dates: start: 20051206, end: 20060503
  13. PROGRAF [Suspect]
     Dosage: 3 MG, UNKNOWN/D
     Route: 048
     Dates: start: 20100923, end: 20110908

REACTIONS (4)
  - SQUAMOUS CELL CARCINOMA [None]
  - PSYCHOMOTOR HYPERACTIVITY [None]
  - FEMORAL NECK FRACTURE [None]
  - INSOMNIA [None]
